FAERS Safety Report 8436152-6 (Version None)
Quarter: 2012Q2

REPORT INFORMATION
  Report Type: 
  Country: None (occurrence: None)
  Receive Date: 20120614
  Receipt Date: 20120611
  Transmission Date: 20120825
  Serious: Yes (Other)
  Sender: FDA-Public Use
  Company Number: ES-PFIZER INC-2012125725

PATIENT
  Age: 52 Year
  Sex: Female

DRUGS (2)
  1. ALPRAZOLAM [Concomitant]
     Dosage: 1 MG, 1X/DAY AT NIGHT
  2. VARENICLINE TARTRATE [Suspect]
     Indication: SMOKING CESSATION THERAPY
     Dosage: UNK
     Route: 048
     Dates: start: 20120303, end: 20120331

REACTIONS (5)
  - DYSPHONIA [None]
  - SWELLING [None]
  - PHARYNGEAL OEDEMA [None]
  - WEIGHT INCREASED [None]
  - SWELLING FACE [None]
